FAERS Safety Report 14584830 (Version 1)
Quarter: 2018Q1

REPORT INFORMATION
  Report Type: Spontaneous
  Country: US (occurrence: US)
  Receive Date: 20180301
  Receipt Date: 20180301
  Transmission Date: 20180509
  Serious: No
  Sender: FDA-Public Use
  Company Number: US-009507513-1504USA012013

PATIENT
  Age: 24 Year
  Sex: Female
  Weight: 61.24 kg

DRUGS (2)
  1. DAPTOMYCIN. [Suspect]
     Active Substance: DAPTOMYCIN
     Indication: CATHETER SITE CELLULITIS
     Dosage: 250 MG, Q24H
     Route: 042
     Dates: start: 20080212
  2. DAPTOMYCIN. [Suspect]
     Active Substance: DAPTOMYCIN
     Dosage: 4 MG/KG, Q24H
     Route: 042
     Dates: start: 20080212

REACTIONS (1)
  - No adverse event [Unknown]
